FAERS Safety Report 17114334 (Version 1)
Quarter: 2019Q4

REPORT INFORMATION
  Report Type: Spontaneous
  Country: NL (occurrence: NL)
  Receive Date: 20191205
  Receipt Date: 20191205
  Transmission Date: 20200122
  Serious: Yes (Life-Threatening)
  Sender: FDA-Public Use
  Company Number: NL-TEVA-2019-NL-1146597

PATIENT
  Age: 65 Year
  Sex: Female
  Weight: 63 kg

DRUGS (13)
  1. PANTOPRAZOL AUROBINDO TABLET MSR 40MG [Concomitant]
     Dosage: 40 MILLIGRAM, 2 X 1 PIECE PER DAY
  2. CLOPIDOGREL AUROBINDO TAB FILMOM  75MG(ALS BISULF) [Concomitant]
     Dosage: 75 MILLIGRAM, 1 X PER DAY 1 ITEM
  3. PAROXETINE MYLAN TABLET FILMOMH 20MG(ALS HCL ANHY) [Concomitant]
     Dosage: 20 MILLIGRAM, 1 X PER DAY 1 ITEM
  4. QUETIAPINE TEVA RETARD TABLET MVA 400MG [Concomitant]
     Dosage: 400 MILLIGRAM, 1 X PER DAY 1 ITEM
  5. LIVOCAB OOGDRUPPELS 0,5MG/ML FLACON 4ML [Concomitant]
     Dosage: 3 X PER DAY DOSAGE UNKNOWN APPLICATION IN THE AFFECTED EYE
  6. ATORVASTATINE MYLAN TABLET FILMOMHULD 40MG [Concomitant]
     Dosage: 40 MILLIGRAM, 1 X PER DAY 1 ITEM
  7. PAROXETINE. [Suspect]
     Active Substance: PAROXETINE
     Indication: DEPRESSION
     Dosage: 20 MG 1DD1
     Dates: start: 2018
  8. CALCI CHEW D3 KAUWTABLET  500MG/400IE [Concomitant]
     Dosage: 2 DOSAGE FORM, 1 X PER DAY 2 ITEMS
  9. EUTHYROX TABLET  88MCG [Concomitant]
     Dosage: 88 MICROGRAM 1 X PER DAY 1 ITEM
  10. LORAZEPAM APOTEX TABLET 1MG [Concomitant]
     Dosage: 1 MILLIGRAM, 1 X PER DAY 1 ITEM IF NECESSARY
  11. RAMIPRIL AUROBINDO TABLET  5MG [Concomitant]
     Dosage: 5 MILLIGRAM, 1 X PER DAY 1 ITEM
  12. METFORMINE HCL MYLAN TABLET  850MG [Concomitant]
     Dosage: 850 MILLIGRAM, 2 X 1 PIECE PER DAY
  13. METOPROLOL/HCT [Concomitant]
     Dosage: 1 DOSAGE FORM, 1 X PER DAY 1 ITEM

REACTIONS (1)
  - Hyponatraemia [Recovering/Resolving]

NARRATIVE: CASE EVENT DATE: 20191105
